FAERS Safety Report 18861654 (Version 1)
Quarter: 2021Q1

REPORT INFORMATION
  Report Type: Spontaneous
  Country: US (occurrence: US)
  Receive Date: 20210208
  Receipt Date: 20210208
  Transmission Date: 20210420
  Serious: No
  Sender: FDA-Public Use
  Company Number: US-PFIZER INC-2018534124

PATIENT
  Age: 68 Year
  Sex: Female

DRUGS (2)
  1. LYRICA [Suspect]
     Active Substance: PREGABALIN
     Indication: PAIN
     Dosage: 150 MG, 2X/DAY (1 CAPSULE ORAL TWICE A DAY)
     Route: 048
     Dates: start: 20190910, end: 20191205
  2. LYRICA [Suspect]
     Active Substance: PREGABALIN
     Dosage: 150 MG 2X/DAY (EVERY 12H)
     Dates: start: 20191205

REACTIONS (1)
  - Fibromyalgia [Unknown]
